FAERS Safety Report 11254669 (Version 1)
Quarter: 2015Q3

REPORT INFORMATION
  Report Type: Spontaneous
  Country: US (occurrence: None)
  Receive Date: 20150708
  Receipt Date: 20150708
  Transmission Date: 20151125
  Serious: No
  Sender: FDA-Public Use
  Company Number: None

PATIENT
  Age: 59 Year
  Sex: Female
  Weight: 56.7 kg

DRUGS (16)
  1. AVAPRO [Suspect]
     Active Substance: IRBESARTAN
     Indication: HYPERTENSION
     Dosage: 1 PILL
     Route: 048
  2. ANUCORT [Concomitant]
  3. BIOTIN [Concomitant]
     Active Substance: BIOTIN
  4. CRANBERRY. [Concomitant]
     Active Substance: CRANBERRY
  5. CALTRATE [Concomitant]
     Active Substance: CALCIUM CARBONATE
  6. PREMARIN [Concomitant]
     Active Substance: ESTROGENS, CONJUGATED
  7. COQ10 [Concomitant]
     Active Substance: UBIDECARENONE
  8. KRILL OIL [Concomitant]
     Active Substance: DIETARY SUPPLEMENT
  9. VITAMIN B COMPLEX [Concomitant]
     Active Substance: CYANOCOBALAMIN\DEXPANTHENOL\NIACINAMIDE\PYRIDOXINE HYDROCHLORIDE\RIBOFLAVIN 5^-PHOSPHATE SODIUM\THIAMINE HYDROCHLORIDE\VITAMIN B COMPLEX
  10. PRAVASTATIN [Concomitant]
     Active Substance: PRAVASTATIN\PRAVASTATIN SODIUM
  11. FLUTICASONE [Concomitant]
     Active Substance: FLUTICASONE\FLUTICASONE PROPIONATE
  12. MULTI VITAMIN [Concomitant]
     Active Substance: VITAMINS
  13. VESICARE [Concomitant]
     Active Substance: SOLIFENACIN SUCCINATE
  14. VALACYCLOVIR [Concomitant]
     Active Substance: VALACYCLOVIR HYDROCHLORIDE
  15. ALOE VERA GEL [Concomitant]
     Active Substance: ALOE VERA LEAF
  16. VITAMIN E [Concomitant]
     Active Substance: .ALPHA.-TOCOPHEROL

REACTIONS (6)
  - Pruritus [None]
  - Paraesthesia oral [None]
  - Tongue blistering [None]
  - Oral mucosal blistering [None]
  - Lip swelling [None]
  - Lip blister [None]
